FAERS Safety Report 16326546 (Version 2)
Quarter: 2019Q2

REPORT INFORMATION
  Report Type: Report from Study
  Country: US (occurrence: US)
  Receive Date: 20190517
  Receipt Date: 20190520
  Transmission Date: 20190711
  Serious: Yes (Hospitalization)
  Sender: FDA-Public Use
  Company Number: US-ALLERGAN-1920584US

PATIENT
  Sex: Female
  Weight: 74.38 kg

DRUGS (3)
  1. LINACLOTIDE 290MCG CAP (11273X) [Suspect]
     Active Substance: LINACLOTIDE
     Dosage: 290 ?G, QD
     Route: 065
     Dates: start: 2014
  2. UNSPECIFIED CONCOMITANTS [Concomitant]
     Indication: PRODUCT USED FOR UNKNOWN INDICATION
     Dosage: UNK
  3. LINACLOTIDE 290MCG CAP (11273X) [Suspect]
     Active Substance: LINACLOTIDE
     Indication: IRRITABLE BOWEL SYNDROME
     Dosage: 290 ?G, PRN
     Route: 065
     Dates: start: 2014

REACTIONS (8)
  - Eating disorder [Recovered/Resolved]
  - Gastrointestinal perforation [Unknown]
  - Blood pressure increased [Recovered/Resolved]
  - Contraindicated product administered [Unknown]
  - Intestinal obstruction [Recovered/Resolved]
  - Bowel movement irregularity [Recovered/Resolved]
  - Abdominal pain upper [Recovered/Resolved]
  - Off label use [Unknown]

NARRATIVE: CASE EVENT DATE: 2014
